FAERS Safety Report 4361907-7 (Version None)
Quarter: 2004Q2

REPORT INFORMATION
  Report Type: 
  Country: None (occurrence: None)
  Receive Date: 20040521
  Receipt Date: 20031203
  Transmission Date: 20050107
  Serious: No
  Sender: FDA-Public Use
  Company Number: 03US03576 TEAM 1-A

PATIENT
  Sex: Female

DRUGS (1)
  1. THORAZINE [Suspect]
     Indication: ILL-DEFINED DISORDER
     Route: 065

REACTIONS (2)
  - ADVERSE EVENT [None]
  - DYSKINESIA [None]
